FAERS Safety Report 16821565 (Version 1)
Quarter: 2019Q3

REPORT INFORMATION
  Report Type: Spontaneous
  Country: SE (occurrence: SE)
  Receive Date: 20190918
  Receipt Date: 20190918
  Transmission Date: 20191005
  Serious: Yes (Other)
  Sender: FDA-Public Use
  Company Number: SE-MYLANLABS-2019M1087398

PATIENT
  Sex: Female

DRUGS (1)
  1. ATENOLOL MYLAN [Suspect]
     Active Substance: ATENOLOL
     Indication: PRODUCT USED FOR UNKNOWN INDICATION
     Dosage: UNK
     Dates: start: 20160103

REACTIONS (7)
  - Sjogren^s syndrome [Unknown]
  - Decreased appetite [Unknown]
  - Oesophageal disorder [Unknown]
  - Alopecia [Unknown]
  - Syncope [Unknown]
  - Weight increased [Unknown]
  - Blood potassium decreased [Unknown]
